FAERS Safety Report 5656670-3 (Version None)
Quarter: 2008Q1

REPORT INFORMATION
  Report Type: 
  Country: None (occurrence: None)
  Receive Date: 20080306
  Receipt Date: 20080306
  Transmission Date: 20080703
  Serious: Yes (Other)
  Sender: FDA-Public Use
  Company Number: None

PATIENT
  Age: 96 Year
  Sex: Female
  Weight: 50 kg

DRUGS (1)
  1. PRIMAXIN [Suspect]
     Indication: PNEUMONIA
     Dosage: 500 MG IV
     Route: 042
     Dates: start: 20080223, end: 20080223

REACTIONS (2)
  - RASH GENERALISED [None]
  - SKIN EXFOLIATION [None]
